FAERS Safety Report 9894427 (Version 1)
Quarter: 2014Q1

REPORT INFORMATION
  Report Type: Spontaneous
  Country: US (occurrence: US)
  Receive Date: 20140213
  Receipt Date: 20140213
  Transmission Date: 20141002
  Serious: No
  Sender: FDA-Public Use
  Company Number: US-TEVA-461894USA

PATIENT
  Age: 36 Year
  Sex: Male
  Weight: 90.8 kg

DRUGS (3)
  1. NUVIGIL [Suspect]
     Indication: CIRCADIAN RHYTHM SLEEP DISORDER
     Dosage: 37.5 MILLIGRAM DAILY; 1/4TH OF 150MG TABLET INCREASED TO 75MG DAILY
     Dates: start: 201401
  2. NUVIGIL [Suspect]
     Indication: ATTENTION DEFICIT/HYPERACTIVITY DISORDER
     Dosage: 75 MILLIGRAM DAILY;
  3. WELLBUTRIN [Concomitant]
     Indication: DEPRESSION

REACTIONS (3)
  - Rash [Not Recovered/Not Resolved]
  - Dry skin [Not Recovered/Not Resolved]
  - Off label use [Unknown]
